FAERS Safety Report 18631567 (Version 1)
Quarter: 2020Q4

REPORT INFORMATION
  Report Type: Spontaneous
  Country: US (occurrence: US)
  Receive Date: 20201217
  Receipt Date: 20201217
  Transmission Date: 20210114
  Serious: No
  Sender: FDA-Public Use
  Company Number: US-ENDO PHARMACEUTICALS INC-2020-003487

PATIENT
  Age: 60 Year
  Sex: Male

DRUGS (2)
  1. XIAFLEX [Suspect]
     Active Substance: COLLAGENASE CLOSTRIDIUM HISTOLYTICUM
     Indication: PEYRONIE^S DISEASE
     Dosage: 0.58 MG, UNKNOWN; CYCLE ONE, INJECTION ONE
     Route: 026
     Dates: start: 20200408
  2. XIAFLEX [Suspect]
     Active Substance: COLLAGENASE CLOSTRIDIUM HISTOLYTICUM
     Dosage: 0.58 MG, UNKNOWN; CYCLE ONE, INJECTION TWO
     Route: 026
     Dates: start: 202004

REACTIONS (6)
  - Penile contusion [Recovered/Resolved]
  - Scrotal pain [Recovered/Resolved]
  - Injection site pain [Recovered/Resolved]
  - Injection site bruising [Recovered/Resolved]
  - Penile pain [Recovered/Resolved]
  - Genital contusion [Recovered/Resolved]

NARRATIVE: CASE EVENT DATE: 202004
